FAERS Safety Report 9891832 (Version 1)
Quarter: 2014Q1

REPORT INFORMATION
  Report Type: Spontaneous
  Country: US (occurrence: None)
  Receive Date: 20140210
  Receipt Date: 20140210
  Transmission Date: 20141002
  Serious: Yes (Other)
  Sender: FDA-Public Use
  Company Number: 2014P1000637

PATIENT
  Age: 68 Year
  Sex: Male

DRUGS (4)
  1. ACTIMMUNE [Suspect]
     Indication: PULMONARY FIBROSIS
     Route: 058
     Dates: start: 20091223
  2. NORVASC 10 MG TABLET [Concomitant]
  3. HYDROCHLOROTHIAZIDE 12.5 MG TABLET [Concomitant]
  4. PLAVIX 75 MG TABLET [Concomitant]

REACTIONS (6)
  - Headache [None]
  - Vomiting [None]
  - Dyspnoea [None]
  - Wheezing [None]
  - Nasopharyngitis [None]
  - Influenza [None]
